FAERS Safety Report 17853597 (Version 1)
Quarter: 2020Q2

REPORT INFORMATION
  Report Type: Spontaneous
  Country: US (occurrence: US)
  Receive Date: 20200602
  Receipt Date: 20200602
  Transmission Date: 20200714
  Serious: Yes (Death, Hospitalization)
  Sender: FDA-Public Use
  Company Number: US-GILEAD-2020-0469416

PATIENT
  Age: 88 Year
  Sex: Female
  Weight: 88.2 kg

DRUGS (2)
  1. REMDESIVIR. [Suspect]
     Active Substance: REMDESIVIR
     Dosage: 100 MG, QD
     Route: 042
     Dates: start: 20200519, end: 20200521
  2. REMDESIVIR. [Suspect]
     Active Substance: REMDESIVIR
     Indication: COVID-19
     Dosage: 200 MG, ONCE
     Route: 042
     Dates: start: 20200518

REACTIONS (4)
  - General physical condition abnormal [Fatal]
  - Hypotension [Unknown]
  - COVID-19 [Fatal]
  - Oxygen consumption decreased [Unknown]

NARRATIVE: CASE EVENT DATE: 20200522
